FAERS Safety Report 4341622-6 (Version None)
Quarter: 2004Q2

REPORT INFORMATION
  Report Type: 
  Country: None (occurrence: None)
  Receive Date: 20040420
  Receipt Date: 20040409
  Transmission Date: 20050107
  Serious: Yes (Hospitalization)
  Sender: FDA-Public Use
  Company Number: 200411487FR

PATIENT
  Age: 60 Year
  Sex: Female

DRUGS (7)
  1. CLAFORAN [Suspect]
     Route: 042
     Dates: start: 20040107, end: 20040215
  2. AMOXICILLIN [Concomitant]
     Route: 042
     Dates: start: 20040107, end: 20040114
  3. ZYRTEC                                  /GFR/ [Concomitant]
  4. CLARITIN [Concomitant]
  5. LOVENOX [Concomitant]
     Route: 042
  6. VANCOMYCIN [Concomitant]
  7. BRICANYL [Concomitant]

REACTIONS (3)
  - HAEMOLYTIC ANAEMIA [None]
  - HEPATITIS [None]
  - HEPATOCELLULAR DAMAGE [None]
